FAERS Safety Report 15226969 (Version 1)
Quarter: 2018Q3

REPORT INFORMATION
  Report Type: Spontaneous
  Country: US (occurrence: US)
  Receive Date: 20180801
  Receipt Date: 20180801
  Transmission Date: 20181010
  Serious: Yes (Hospitalization)
  Sender: FDA-Public Use
  Company Number: PHHY2018US052796

PATIENT
  Age: 15 Month
  Sex: Female

DRUGS (2)
  1. VINBLASTINE [Suspect]
     Active Substance: VINBLASTINE
     Indication: LANGERHANS CELL SARCOMA
     Route: 065
  2. PREDNISONE. [Suspect]
     Active Substance: PREDNISONE
     Indication: LANGERHANS CELL SARCOMA
     Route: 065

REACTIONS (8)
  - Pneumothorax [Unknown]
  - Disease recurrence [Unknown]
  - Hyperlipidaemia [Unknown]
  - Hypertension [Unknown]
  - Pseudohyponatraemia [Unknown]
  - Tachypnoea [Unknown]
  - Product use in unapproved indication [Unknown]
  - Cholestasis [Unknown]
